FAERS Safety Report 5493193-9 (Version None)
Quarter: 2007Q4

REPORT INFORMATION
  Report Type: 
  Country: None (occurrence: None)
  Receive Date: 20071023
  Receipt Date: 20071019
  Transmission Date: 20080405
  Serious: Yes (Other)
  Sender: FDA-Public Use
  Company Number: A0688747A

PATIENT
  Age: 32 Year
  Sex: Female

DRUGS (7)
  1. EPZICOM [Suspect]
     Indication: HIV INFECTION
     Dosage: 1TAB PER DAY
     Route: 048
     Dates: start: 20070919, end: 20071013
  2. KALETRA [Concomitant]
  3. EFFEXOR [Concomitant]
  4. LISINOPRIL [Concomitant]
  5. COGENTIN [Concomitant]
  6. DEPAKOTE [Concomitant]
  7. PERCOCET [Concomitant]

REACTIONS (3)
  - DYSPNOEA [None]
  - PYREXIA [None]
  - RASH [None]
